FAERS Safety Report 25766740 (Version 1)
Quarter: 2025Q3

REPORT INFORMATION
  Report Type: Spontaneous
  Country: US (occurrence: None)
  Receive Date: 20250903
  Receipt Date: 20250903
  Transmission Date: 20251021
  Serious: Yes (Disabling)
  Sender: FDA-CTU
  Company Number: None

PATIENT
  Age: 54 Year
  Sex: Female
  Weight: 84.6 kg

DRUGS (1)
  1. OLMESARTAN MEDOXOMIL [Suspect]
     Active Substance: OLMESARTAN MEDOXOMIL
     Indication: Hypertension
     Dosage: OTHER QUANTITY : 90 TABLET(S);?FREQUENCY : DAILY;?
     Route: 048
     Dates: start: 20250825, end: 20250901

REACTIONS (6)
  - Myalgia [None]
  - Arthralgia [None]
  - Memory impairment [None]
  - Aphasia [None]
  - Memory impairment [None]
  - Therapy cessation [None]

NARRATIVE: CASE EVENT DATE: 20250831
